FAERS Safety Report 9519223 (Version 1)
Quarter: 2013Q3

REPORT INFORMATION
  Report Type: Spontaneous
  Country: US (occurrence: None)
  Receive Date: 20130911
  Receipt Date: 20130911
  Transmission Date: 20140515
  Serious: Yes (Disabling)
  Sender: FDA-Public Use
  Company Number: None

PATIENT
  Age: 21 Year
  Sex: Female

DRUGS (5)
  1. AVELOX [Suspect]
     Indication: SINUSITIS
     Route: 048
     Dates: start: 20130402, end: 20130412
  2. NEURONTIN [Concomitant]
  3. MONONESSA [Concomitant]
  4. LIDODERM [Concomitant]
  5. TENS UNITS [Concomitant]

REACTIONS (5)
  - Hypoaesthesia [None]
  - Paraesthesia [None]
  - Pain [None]
  - Burning sensation [None]
  - Nerve compression [None]
